FAERS Safety Report 6078829-6 (Version None)
Quarter: 2009Q1

REPORT INFORMATION
  Report Type: 
  Country: None (occurrence: None)
  Receive Date: 20090216
  Receipt Date: 20090211
  Transmission Date: 20090719
  Serious: Yes (Death)
  Sender: FDA-Public Use
  Company Number: US-BAYER-200716189NA

PATIENT
  Sex: Male

DRUGS (8)
  1. MAGNEVIST [Suspect]
     Indication: NUCLEAR MAGNETIC RESONANCE IMAGING
     Route: 042
     Dates: start: 20050115, end: 20050115
  2. MAGNEVIST [Suspect]
     Route: 042
     Dates: start: 20050712, end: 20050712
  3. OMNISCAN [Suspect]
     Indication: NUCLEAR MAGNETIC RESONANCE IMAGING
     Route: 042
     Dates: start: 20050115, end: 20050115
  4. OMNISCAN [Suspect]
     Route: 042
     Dates: start: 20050712, end: 20050712
  5. OPTIMARK [Suspect]
     Indication: NUCLEAR MAGNETIC RESONANCE IMAGING
     Route: 042
     Dates: start: 20050115, end: 20050115
  6. OPTIMARK [Suspect]
     Route: 042
     Dates: start: 20050712, end: 20050712
  7. MULTIHANCE [Suspect]
     Indication: NUCLEAR MAGNETIC RESONANCE IMAGING
     Route: 042
     Dates: start: 20050115, end: 20050115
  8. MULTIHANCE [Suspect]
     Route: 042
     Dates: start: 20050712, end: 20050712

REACTIONS (4)
  - FIBROSIS [None]
  - INJURY [None]
  - LUNG DISORDER [None]
  - NEPHROGENIC SYSTEMIC FIBROSIS [None]
